FAERS Safety Report 6835299-5 (Version None)
Quarter: 2010Q3

REPORT INFORMATION
  Report Type: 
  Country: None (occurrence: None)
  Receive Date: 20100713
  Receipt Date: 20100629
  Transmission Date: 20110219
  Serious: Yes (Hospitalization)
  Sender: FDA-Public Use
  Company Number: JP-BAXTER-2010BH016266

PATIENT
  Age: 56 Year
  Sex: Male
  Weight: 72 kg

DRUGS (4)
  1. EXTRANEAL [Suspect]
     Indication: RENAL FAILURE CHRONIC
     Route: 033
     Dates: start: 20081003
  2. DIANEAL PD-2 W/ DEXTROSE 1.5% [Concomitant]
     Indication: RENAL FAILURE CHRONIC
     Route: 033
     Dates: start: 20080925, end: 20100202
  3. DIANEAL PD-2 W/ DEXTROSE 1.5% [Concomitant]
     Route: 033
     Dates: start: 20100202
  4. DIANEAL PD-2 W/ DEXTROSE 1.5% [Concomitant]
     Indication: RENAL FAILURE CHRONIC
     Route: 033
     Dates: start: 20100605

REACTIONS (1)
  - ECZEMA [None]
